FAERS Safety Report 6011658-8 (Version None)
Quarter: 2008Q4

REPORT INFORMATION
  Report Type: 
  Country: None (occurrence: None)
  Receive Date: 20081218
  Receipt Date: 20081206
  Transmission Date: 20090506
  Serious: No
  Sender: FDA-Public Use
  Company Number: US-BAYER-200814798BCC

PATIENT

DRUGS (1)
  1. ALEVE [Suspect]
     Indication: ADVERSE EVENT
     Dates: start: 20081206

REACTIONS (1)
  - NO ADVERSE EVENT [None]
